FAERS Safety Report 5888310-2 (Version None)
Quarter: 2008Q3

REPORT INFORMATION
  Report Type: 
  Country: None (occurrence: None)
  Receive Date: 20080916
  Receipt Date: 20080916
  Transmission Date: 20090109
  Serious: No
  Sender: FDA-Public Use
  Company Number: None

PATIENT
  Age: 36 Year
  Sex: Female
  Weight: 56.6996 kg

DRUGS (1)
  1. CHANTIX [Suspect]
     Dosage: 4 MG DAILY EPIDURAL
     Route: 008

REACTIONS (2)
  - ABNORMAL BEHAVIOUR [None]
  - PERSONALITY CHANGE [None]
